FAERS Safety Report 8013147-8 (Version None)
Quarter: 2011Q4

REPORT INFORMATION
  Report Type: 
  Country: None (occurrence: None)
  Receive Date: 20111229
  Receipt Date: 20111227
  Transmission Date: 20120403
  Serious: No
  Sender: FDA-Public Use
  Company Number: US-PFIZER INC-2011314797

PATIENT
  Age: 20 Year
  Sex: Female

DRUGS (3)
  1. DEPO-PROVERA [Suspect]
     Indication: POST COITAL CONTRACEPTION
  2. DEPO-PROVERA [Suspect]
     Indication: OFF LABEL USE
     Dosage: UNK
     Dates: start: 20111210
  3. LEVONORGESTREL [Suspect]
     Indication: POST COITAL CONTRACEPTION

REACTIONS (1)
  - MENSTRUATION DELAYED [None]
